FAERS Safety Report 4320541-5 (Version None)
Quarter: 2004Q1

REPORT INFORMATION
  Report Type: 
  Country: None (occurrence: None)
  Receive Date: 20040319
  Receipt Date: 20040319
  Transmission Date: 20041129
  Serious: Yes (Hospitalization)
  Sender: FDA-Public Use
  Company Number: None

PATIENT
  Age: 68 Year
  Sex: Female
  Weight: 58.8769 kg

DRUGS (2)
  1. OSI-774 TARCEVA [Suspect]
     Indication: ADENOCARCINOMA PANCREAS
     Dosage: 150 MG DAY ORAL
     Route: 048
     Dates: start: 20040223, end: 20040315
  2. CAPECITABINE [Suspect]
     Indication: ADENOCARCINOMA PANCREAS
     Dosage: 1000 MG DAY ORAL
     Route: 048
     Dates: start: 20040223, end: 20040315

REACTIONS (2)
  - HAEMATOCRIT DECREASED [None]
  - THROMBOSIS [None]
